FAERS Safety Report 5706669-3 (Version None)
Quarter: 2008Q2

REPORT INFORMATION
  Report Type: 
  Country: None (occurrence: None)
  Receive Date: 20080414
  Receipt Date: 20080414
  Transmission Date: 20081010
  Serious: Yes (Other)
  Sender: FDA-Public Use
  Company Number: None

PATIENT
  Age: 93 Year
  Sex: Female
  Weight: 41.2773 kg

DRUGS (3)
  1. TAMIFLU [Suspect]
     Indication: INFLUENZA
     Dosage: 75 MG TWICE A DAY ORAL
     Route: 048
     Dates: start: 20080307, end: 20080312
  2. LEVOTHYROXINE SODIUM [Concomitant]
  3. NORVASC [Concomitant]

REACTIONS (9)
  - CRYING [None]
  - DEPRESSION [None]
  - FATIGUE [None]
  - FEELING ABNORMAL [None]
  - FEELING OF DESPAIR [None]
  - HALLUCINATION, VISUAL [None]
  - RESTLESSNESS [None]
  - SCREAMING [None]
  - TREMOR [None]
